FAERS Safety Report 25111391 (Version 2)
Quarter: 2025Q2

REPORT INFORMATION
  Report Type: Other
  Country: FR (occurrence: FR)
  Receive Date: 20250324
  Receipt Date: 20250501
  Transmission Date: 20250716
  Serious: Yes (Other)
  Sender: ZYDUS PHARM
  Company Number: None

PATIENT

DRUGS (2)
  1. SERTRALINE [Suspect]
     Active Substance: SERTRALINE HYDROCHLORIDE
     Indication: Depression
     Route: 065
     Dates: start: 202302
  2. LAMICTAL [Suspect]
     Active Substance: LAMOTRIGINE
     Indication: Depression
     Route: 065
     Dates: start: 20240911

REACTIONS (1)
  - Ventricular flutter [Recovered/Resolved]

NARRATIVE: CASE EVENT DATE: 20250101
